FAERS Safety Report 4645095-5 (Version None)
Quarter: 2005Q2

REPORT INFORMATION
  Report Type: 
  Country: None (occurrence: None)
  Receive Date: 20050422
  Receipt Date: 20050324
  Transmission Date: 20051028
  Serious: Yes (Other)
  Sender: FDA-Public Use
  Company Number: MED000066

PATIENT
  Sex: Female

DRUGS (1)
  1. LACTATED RINGERS AND 5% DEXTROSE INJECTION IN PLASTIC CONTAINER (PL 14 [Suspect]
     Indication: NORMAL LABOUR
     Dosage: INTRAVENOUS
     Route: 042

REACTIONS (3)
  - INFUSION RELATED REACTION [None]
  - PRURITUS [None]
  - URTICARIA [None]
